FAERS Safety Report 19760989 (Version 2)
Quarter: 2021Q3

REPORT INFORMATION
  Report Type: Spontaneous
  Country: FR (occurrence: FR)
  Receive Date: 20210830
  Receipt Date: 20210913
  Transmission Date: 20211014
  Serious: Yes (Hospitalization)
  Sender: FDA-Public Use
  Company Number: FR-CELLTRION INC.-2021FR011475

PATIENT

DRUGS (15)
  1. CISPLATIN. [Concomitant]
     Active Substance: CISPLATIN
     Dosage: UNK
     Route: 065
     Dates: start: 20190213
  2. PERTUZUMAB. [Suspect]
     Active Substance: PERTUZUMAB
     Indication: METASTATIC BRONCHIAL CARCINOMA
     Dosage: FIFTY FOURTH INFUSION ON 01/FEB/2019
     Route: 065
  3. TRASTUZUMAB. [Suspect]
     Active Substance: TRASTUZUMAB
     Indication: BRONCHIAL CARCINOMA
     Dosage: UNK
     Route: 065
     Dates: start: 20190201
  4. TRASTUZUMAB. [Suspect]
     Active Substance: TRASTUZUMAB
     Dosage: FIFTY FOURTH INFUSION ON 01/FEB/2019
     Route: 065
  5. PEMETREXED. [Suspect]
     Active Substance: PEMETREXED
     Indication: BRONCHIAL CARCINOMA
     Dosage: UNK, (54 INFUSIONS)
     Route: 065
     Dates: start: 20190201
  6. PERTUZUMAB. [Suspect]
     Active Substance: PERTUZUMAB
     Dosage: FIFTY FOURTH INFUSION ON 01/FEB/2019
     Route: 065
  7. PEMETREXED. [Concomitant]
     Active Substance: PEMETREXED
     Dosage: UNK
     Route: 065
     Dates: start: 20190213
  8. CISPLATIN. [Concomitant]
     Active Substance: CISPLATIN
     Indication: METASTATIC BRONCHIAL CARCINOMA
     Dosage: UNK
     Route: 065
     Dates: start: 20190213
  9. PERTUZUMAB. [Suspect]
     Active Substance: PERTUZUMAB
     Indication: BRONCHIAL CARCINOMA
     Dosage: UNK
     Route: 065
     Dates: start: 20190201
  10. CISPLATIN. [Concomitant]
     Active Substance: CISPLATIN
     Dosage: UNK
     Route: 065
     Dates: start: 20190213
  11. PERTUZUMAB. [Suspect]
     Active Substance: PERTUZUMAB
     Dosage: FIFTY FOURTH INFUSION ON 01/FEB/2019
     Route: 065
  12. PEMETREXED (MANUFACTURER UNKNOWN) [Suspect]
     Active Substance: PEMETREXED
     Indication: METASTATIC BRONCHIAL CARCINOMA
     Dosage: FIFTY FOURTH INFUSION ON 01/FEB/2019
     Route: 065
  13. PEMETREXED. [Concomitant]
     Active Substance: PEMETREXED
     Indication: METASTATIC BRONCHIAL CARCINOMA
     Dosage: UNK
     Route: 065
     Dates: start: 20190213
  14. PEMETREXED. [Concomitant]
     Active Substance: PEMETREXED
     Dosage: UNK
     Route: 065
     Dates: start: 20190213
  15. TRASTUZUMAB. [Suspect]
     Active Substance: TRASTUZUMAB
     Indication: METASTATIC BRONCHIAL CARCINOMA
     Dosage: FIFTY FOURTH INFUSION ON 01/FEB/2019
     Route: 065

REACTIONS (4)
  - Fluid retention [Recovered/Resolved]
  - Toxicity to various agents [Recovered/Resolved]
  - Off label use [Unknown]
  - Product use in unapproved indication [Unknown]
